FAERS Safety Report 4459400-6 (Version None)
Quarter: 2004Q3

REPORT INFORMATION
  Report Type: 
  Country: None (occurrence: None)
  Receive Date: 20040927
  Receipt Date: 20040703
  Transmission Date: 20050211
  Serious: Yes (Death)
  Sender: FDA-Public Use
  Company Number: US-GLAXOSMITHKLINE-A0517054A

PATIENT
  Age: 29 Year
  Sex: Male

DRUGS (1)
  1. WELLBUTRIN [Suspect]
     Indication: DEPRESSION
     Route: 048

REACTIONS (11)
  - AGITATION [None]
  - ANXIETY [None]
  - COMPLETED SUICIDE [None]
  - CONDITION AGGRAVATED [None]
  - DISSOCIATION [None]
  - GUN SHOT WOUND [None]
  - HEAD INJURY [None]
  - HOSTILITY [None]
  - INSOMNIA [None]
  - IRRITABILITY [None]
  - WEIGHT INCREASED [None]
